FAERS Safety Report 8611338-6 (Version None)
Quarter: 2012Q3

REPORT INFORMATION
  Report Type: 
  Country: None (occurrence: None)
  Receive Date: 20120822
  Receipt Date: 20120817
  Transmission Date: 20120928
  Serious: Yes (Other)
  Sender: FDA-Public Use
  Company Number: TN-PFIZER INC-2012192127

PATIENT
  Age: 60 Year
  Sex: Male

DRUGS (4)
  1. LYRICA [Suspect]
     Dosage: 100 MG, 1X/DAY
  2. ZOLPIDEM [Concomitant]
     Indication: SLEEP DISORDER
     Dosage: TOOK OCCASIONALLY
  3. LYRICA [Suspect]
     Indication: NEUROPATHY PERIPHERAL
     Dosage: 75 MG, 1X/DAY
     Route: 048
  4. LYRICA [Suspect]
     Dosage: 150 MG, 1X/DAY

REACTIONS (2)
  - CELL DEATH [None]
  - CHOLESTASIS [None]
